FAERS Safety Report 4863705-4 (Version None)
Quarter: 2005Q4

REPORT INFORMATION
  Report Type: 
  Country: None (occurrence: None)
  Receive Date: 20051222
  Receipt Date: 20050629
  Transmission Date: 20060501
  Serious: No
  Sender: FDA-Public Use
  Company Number: US-GLAXOSMITHKLINE-A0565074A

PATIENT
  Age: 58 Year
  Sex: Female

DRUGS (6)
  1. FLONASE [Suspect]
     Dosage: 2SPR PER DAY
     Route: 045
  2. ALBUTEROL [Concomitant]
  3. NORVASC [Concomitant]
  4. HYDROCHLOROTHIAZIDE [Concomitant]
  5. ADVIL COLD AND SINUS [Concomitant]
  6. LIPITOR [Concomitant]

REACTIONS (2)
  - DRUG INEFFECTIVE [None]
  - SINUS HEADACHE [None]
